FAERS Safety Report 9720478 (Version 2)
Quarter: 2016Q2

REPORT INFORMATION
  Report Type: Spontaneous
  Country: US (occurrence: US)
  Receive Date: 20131129
  Receipt Date: 20160614
  Transmission Date: 20160815
  Serious: Yes (Death, Life-Threatening, Hospitalization)
  Sender: FDA-Public Use
  Company Number: US-RANBAXY-2013US-75689

PATIENT
  Age: 50 Year
  Sex: Female

DRUGS (5)
  1. NITROFURANTOIN. [Suspect]
     Active Substance: NITROFURANTOIN
     Indication: URINARY TRACT INFECTION
     Dosage: UNK
     Route: 065
  2. PARACETAMOL [Suspect]
     Active Substance: ACETAMINOPHEN
     Indication: PAIN
     Dosage: 1 G, Q4H
     Route: 048
  3. DILAUDID [Concomitant]
     Active Substance: HYDROMORPHONE HYDROCHLORIDE
     Indication: PAIN
     Dosage: UNK
     Route: 065
  4. METOCLOPRAMIDE. [Suspect]
     Active Substance: METOCLOPRAMIDE
     Indication: PRODUCT USED FOR UNKNOWN INDICATION
     Dosage: UNK
     Route: 065
  5. VICODIN [Suspect]
     Active Substance: ACETAMINOPHEN\HYDROCODONE BITARTRATE
     Indication: PAIN
     Dosage: UNK
     Route: 065

REACTIONS (14)
  - Generalised oedema [Recovered/Resolved]
  - Septic shock [Unknown]
  - Pneumonia [Recovered/Resolved]
  - Staphylococcal infection [Unknown]
  - Respiratory failure [Unknown]
  - Drug-disease interaction [Unknown]
  - Cerebral haemorrhage [Unknown]
  - Acute hepatic failure [Fatal]
  - Gastrointestinal haemorrhage [Unknown]
  - Malnutrition [Recovered/Resolved]
  - Clostridium difficile colitis [Unknown]
  - Brain midline shift [Unknown]
  - Brain herniation [Unknown]
  - Coagulopathy [Unknown]
